FAERS Safety Report 8335939-8 (Version None)
Quarter: 2012Q2

REPORT INFORMATION
  Report Type: 
  Country: None (occurrence: None)
  Receive Date: 20120501
  Receipt Date: 20120501
  Transmission Date: 20120825
  Serious: Yes (Hospitalization)
  Sender: FDA-Public Use
  Company Number: None

PATIENT
  Age: 79 Year
  Sex: Male
  Weight: 93.9 kg

DRUGS (17)
  1. NAMENDA [Concomitant]
  2. HUMULIN N [Concomitant]
  3. METFORMIN HCL [Concomitant]
  4. M.V.I. [Concomitant]
  5. VITAMIN D [Concomitant]
  6. CINNAMON [Concomitant]
  7. BUPRION [Concomitant]
  8. COUMADIN [Suspect]
     Indication: ANKLE FRACTURE
     Dosage: 6MG QD PO CHRONIC
     Route: 048
  9. HYDROCHLOROTHIAZIDE [Concomitant]
  10. TYLENOL (CAPLET) [Concomitant]
  11. ASPIRIN [Suspect]
     Indication: CARDIOVASCULAR EVENT PROPHYLAXIS
     Dosage: 81MG QD PO CHRONIC
     Route: 048
  12. GLIMEPIRIDE [Concomitant]
  13. NORCO [Concomitant]
  14. ARICEPT [Concomitant]
  15. SAXAGLIPTIN [Concomitant]
  16. DIOVAN [Concomitant]
  17. CRESTOR [Concomitant]

REACTIONS (3)
  - BLOOD POTASSIUM DECREASED [None]
  - DIVERTICULUM INTESTINAL HAEMORRHAGIC [None]
  - BLOOD MAGNESIUM DECREASED [None]
